FAERS Safety Report 8826932 (Version 1)
Quarter: 2012Q4

REPORT INFORMATION
  Report Type: 
  Country: RU (occurrence: RU)
  Receive Date: 20121005
  Receipt Date: 20121005
  Transmission Date: 20130627
  Serious: Yes (Other)
  Sender: FDA-Public Use
  Company Number: RU-ASTRAZENECA-2012SE75560

PATIENT
  Age: 73 Year
  Sex: Male

DRUGS (9)
  1. BRILINTA [Suspect]
     Indication: ACUTE CORONARY SYNDROME
     Route: 048
     Dates: start: 20120923, end: 20120928
  2. ASPIRIN (ACETYLSALICYLIC ACID) [Concomitant]
     Route: 048
  3. FUROCEMIDE [Concomitant]
     Route: 042
  4. ENALAPRIL [Concomitant]
     Route: 048
  5. OMEZ (OMEPRAZOLE) [Concomitant]
     Route: 048
  6. VEROSHPIRON (SPIRONOLACTONE) [Concomitant]
     Route: 048
  7. INFUSIONS OF SODIUM [Concomitant]
     Route: 042
  8. INFUSIONS OF MAGNESIUM [Concomitant]
     Route: 042
  9. SODIUM CHLORIDE [Concomitant]
     Route: 042

REACTIONS (2)
  - Mallory-Weiss syndrome [Unknown]
  - Haematochezia [Unknown]
